FAERS Safety Report 6423867-4 (Version None)
Quarter: 2009Q4

REPORT INFORMATION
  Report Type: 
  Country: None (occurrence: None)
  Receive Date: 20091028
  Receipt Date: 20091013
  Transmission Date: 20100525
  Serious: Yes (Hospitalization)
  Sender: FDA-Public Use
  Company Number: 2009000906

PATIENT
  Age: 54 Year
  Sex: Female

DRUGS (2)
  1. ERLOTINIB HYDROCHLORIDE [Suspect]
     Indication: NON-SMALL CELL LUNG CANCER
     Dosage: (150 MG,QD),ORAL
     Route: 048
     Dates: start: 20090220, end: 20090717
  2. RO4858696 [Suspect]
     Indication: NON-SMALL CELL LUNG CANCER
     Dosage: (513 MG/KG,QW),INTRAVENOUS
     Route: 042
     Dates: start: 20090220, end: 20090724

REACTIONS (1)
  - CONVULSION [None]
